FAERS Safety Report 16961666 (Version 1)
Quarter: 2019Q4

REPORT INFORMATION
  Report Type: Spontaneous
  Country: LT (occurrence: LT)
  Receive Date: 20191025
  Receipt Date: 20191025
  Transmission Date: 20200122
  Serious: Yes (Life-Threatening, Hospitalization)
  Sender: FDA-Public Use
  Company Number: LT-ASTRAZENECA-2019SF49903

PATIENT
  Age: 48 Year
  Weight: 70 kg

DRUGS (4)
  1. CLONAZEPAM. [Suspect]
     Active Substance: CLONAZEPAM
     Indication: OVERDOSE
     Dosage: 25.0MG UNKNOWN
     Route: 048
     Dates: start: 20190921, end: 20190921
  2. QUETIAPINE. [Suspect]
     Active Substance: QUETIAPINE
     Indication: COMPLETED SUICIDE
     Route: 048
     Dates: start: 20190921, end: 20190921
  3. QUETIAPINE. [Suspect]
     Active Substance: QUETIAPINE
     Indication: OVERDOSE
     Route: 048
     Dates: start: 20190921, end: 20190921
  4. CLONAZEPAM. [Suspect]
     Active Substance: CLONAZEPAM
     Indication: COMPLETED SUICIDE
     Dosage: 25.0MG UNKNOWN
     Route: 048
     Dates: start: 20190921, end: 20190921

REACTIONS (2)
  - Coma [Recovered/Resolved]
  - Somnolence [Recovered/Resolved]

NARRATIVE: CASE EVENT DATE: 20190921
